FAERS Safety Report 16573387 (Version 5)
Quarter: 2019Q4

REPORT INFORMATION
  Report Type: Report from Study
  Country: IT (occurrence: IT)
  Receive Date: 20190715
  Receipt Date: 20191223
  Transmission Date: 20200122
  Serious: Yes (Death, Hospitalization)
  Sender: FDA-Public Use
  Company Number: IT-EISAI MEDICAL RESEARCH-EC-2019-058991

PATIENT
  Age: 72 Year
  Sex: Male
  Weight: 81 kg

DRUGS (10)
  1. DIOSMECTAL [Concomitant]
     Active Substance: UNSPECIFIED INGREDIENT
  2. CARICOR [Concomitant]
  3. LENVATINIB [Suspect]
     Active Substance: LENVATINIB
     Indication: RENAL CELL CARCINOMA
     Route: 048
     Dates: start: 20190626, end: 20190708
  4. EVEROLIMUS. [Suspect]
     Active Substance: EVEROLIMUS
     Indication: RENAL CELL CARCINOMA
     Route: 048
     Dates: start: 20190626, end: 20190708
  5. PLAUNAC [Concomitant]
     Active Substance: OLMESARTAN MEDOXOMIL
  6. LASIX [Concomitant]
     Active Substance: FUROSEMIDE
  7. EUTIROX [Concomitant]
     Active Substance: LEVOTHYROXINE SODIUM
  8. ALDACTONE [Concomitant]
     Active Substance: SPIRONOLACTONE
  9. TORVAST [Concomitant]
     Active Substance: ATORVASTATIN
  10. PLASIL [Concomitant]
     Active Substance: METOCLOPRAMIDE HYDROCHLORIDE

REACTIONS (2)
  - Shock [Recovered/Resolved with Sequelae]
  - Cardiac arrest [Fatal]

NARRATIVE: CASE EVENT DATE: 20190709
